FAERS Safety Report 8374574-2 (Version None)
Quarter: 2012Q2

REPORT INFORMATION
  Report Type: 
  Country: None (occurrence: None)
  Receive Date: 20120521
  Receipt Date: 20120513
  Transmission Date: 20120825
  Serious: Yes (Other)
  Sender: FDA-Public Use
  Company Number: US-FRI-1000030495

PATIENT
  Age: 65 Year
  Sex: Female

DRUGS (21)
  1. VIIBRYD [Suspect]
     Indication: DEPRESSION
     Dosage: 10 MG
     Route: 048
     Dates: start: 20111101, end: 20110101
  2. NOVOLOG [Concomitant]
  3. XANAX [Concomitant]
     Indication: INSOMNIA
     Dosage: 0.25 MG
     Route: 048
  4. LEVOTHYROXINE SODIUM [Concomitant]
     Indication: HYPOTHYROIDISM
     Dosage: 50 MCG
     Route: 048
  5. OMEPRAZOLE [Concomitant]
     Indication: GASTROOESOPHAGEAL REFLUX DISEASE
     Dosage: 40 MG
     Route: 048
  6. VITAMIN B-12 [Concomitant]
  7. ASCORBIC ACID [Concomitant]
  8. VIIBRYD [Suspect]
     Dosage: 30 MG
     Route: 048
  9. ASPIRIN [Concomitant]
  10. LISINOPRIL [Concomitant]
     Indication: HYPERTENSION
     Dosage: 40 MG
     Route: 048
  11. VITAMIN E [Concomitant]
  12. CALCIUM [Concomitant]
  13. TIMOLOL MALEATE [Concomitant]
  14. ATORVASTATIN CALCIUM [Concomitant]
     Indication: BLOOD CHOLESTEROL INCREASED
     Dosage: 80 MG
     Route: 048
  15. ALENDRONATE SODIUM [Concomitant]
     Dosage: 70 MG
     Route: 048
  16. VIIBRYD [Suspect]
     Dosage: 20 MG
     Route: 048
     Dates: start: 20110101, end: 20110101
  17. VIIBRYD [Suspect]
     Dosage: 40 MG
     Route: 048
     Dates: start: 20110101
  18. PREMPRO [Concomitant]
     Indication: HORMONE REPLACEMENT THERAPY
  19. FLUTICASONE PROPIONATE [Concomitant]
  20. VITAMIN D [Concomitant]
  21. GARLIC [Concomitant]

REACTIONS (3)
  - SUICIDAL IDEATION [None]
  - DEPRESSION [None]
  - FATIGUE [None]
